FAERS Safety Report 25056697 (Version 1)
Quarter: 2025Q1

REPORT INFORMATION
  Report Type: Spontaneous
  Country: JP (occurrence: JP)
  Receive Date: 20250310
  Receipt Date: 20250310
  Transmission Date: 20250409
  Serious: Yes (Life-Threatening, Hospitalization)
  Sender: MERCK SHARP & DOHME LLC
  Company Number: JP-MSD-M2025-00898

PATIENT
  Age: 74 Year
  Sex: Male
  Weight: 55 kg

DRUGS (3)
  1. KEYTRUDA [Suspect]
     Active Substance: PEMBROLIZUMAB
     Indication: Prostate cancer
     Dosage: DOSE DESCRIPTION : 200 MILLIGRAM, QOW?DAILY DOSE : 14.2 MILLIGRAM?REGIMEN DOSE : 400  MILLIGRAM
     Route: 041
     Dates: start: 20241127, end: 20241218
  2. PADCEV [Suspect]
     Active Substance: ENFORTUMAB VEDOTIN-EJFV
     Indication: Ureteric cancer
     Dosage: DOSE DESCRIPTION : 60 MILLIGRAM, QOW?DAILY DOSE : 4.26 MILLIGRAM?REGIMEN DOSE : 120  MILLIGRAM
     Route: 041
     Dates: start: 20241127, end: 20241218
  3. ERLEADA [Suspect]
     Active Substance: APALUTAMIDE
     Indication: Prostate cancer
     Dosage: DOSE DESCRIPTION : 180 MILLIGRAM, QD?DAILY DOSE : 180 MILLIGRAM?REGIMEN DOSE : 12780  MILLIGRAM
     Route: 048
     Dates: start: 20241021, end: 20241230

REACTIONS (3)
  - Toxic epidermal necrolysis [Recovering/Resolving]
  - Cytomegalovirus infection [Unknown]
  - Off label use [Unknown]

NARRATIVE: CASE EVENT DATE: 20241204
